FAERS Safety Report 16701072 (Version 2)
Quarter: 2019Q3

REPORT INFORMATION
  Report Type: Spontaneous
  Country: TH (occurrence: TH)
  Receive Date: 20190814
  Receipt Date: 20190816
  Transmission Date: 20191004
  Serious: Yes (Other)
  Sender: FDA-Public Use
  Company Number: TH-ROCHE-2369881

PATIENT
  Age: 71 Year
  Sex: Male

DRUGS (7)
  1. ATEZOLIZUMAB. [Suspect]
     Active Substance: ATEZOLIZUMAB
     Dosage: MAINTENANCE TREATMENT
     Route: 065
  2. BEVACIZUMAB. [Suspect]
     Active Substance: BEVACIZUMAB
     Indication: NON-SMALL CELL LUNG CANCER STAGE IV
     Dosage: 6 CYCLES
     Route: 042
     Dates: start: 20180906, end: 20181227
  3. ATEZOLIZUMAB. [Suspect]
     Active Substance: ATEZOLIZUMAB
     Dosage: MAINTENANCE TREATMENT
     Route: 042
     Dates: start: 20190117, end: 20190423
  4. CARBOPLATIN. [Suspect]
     Active Substance: CARBOPLATIN
     Indication: NON-SMALL CELL LUNG CANCER STAGE IV
     Dosage: 6 CYCLES
     Route: 042
     Dates: start: 20180906, end: 20181227
  5. BEVACIZUMAB. [Suspect]
     Active Substance: BEVACIZUMAB
     Dosage: MAINTENANCE TREATMENT
     Route: 042
     Dates: start: 20190117, end: 20190423
  6. ATEZOLIZUMAB. [Suspect]
     Active Substance: ATEZOLIZUMAB
     Indication: NON-SMALL CELL LUNG CANCER STAGE IV
     Dosage: 6 CYCLES
     Route: 042
     Dates: start: 20180906, end: 20181227
  7. PACLITAXEL. [Suspect]
     Active Substance: PACLITAXEL
     Indication: NON-SMALL CELL LUNG CANCER STAGE IV
     Dosage: 6 CYCLES
     Route: 065
     Dates: start: 20180906, end: 20181227

REACTIONS (5)
  - Neuropathy peripheral [Recovered/Resolved]
  - Neutropenia [Recovered/Resolved with Sequelae]
  - Hypertension [Recovered/Resolved with Sequelae]
  - Proteinuria [Recovered/Resolved]
  - Rash [Unknown]
